FAERS Safety Report 23823058 (Version 1)
Quarter: 2024Q2

REPORT INFORMATION
  Report Type: Spontaneous
  Country: CZ (occurrence: CZ)
  Receive Date: 20240507
  Receipt Date: 20240507
  Transmission Date: 20240715
  Serious: Yes (Hospitalization, Other)
  Sender: FDA-Public Use
  Company Number: CZ-STRIDES ARCOLAB LIMITED-2024SP005195

PATIENT
  Age: 33 Year
  Sex: Female

DRUGS (9)
  1. IBUPROFEN [Suspect]
     Active Substance: IBUPROFEN
     Indication: Migraine
     Dosage: UNK (HIGH DOSES)
     Route: 065
  2. IBUPROFEN [Suspect]
     Active Substance: IBUPROFEN
     Indication: Back pain
  3. PREDNISOLONE [Suspect]
     Active Substance: PREDNISOLONE
     Indication: Product used for unknown indication
     Dosage: UNK
     Route: 065
  4. ALPRAZOLAM [Suspect]
     Active Substance: ALPRAZOLAM
     Indication: Migraine
     Dosage: UNK
     Route: 065
  5. IBUPROFEN\PSEUDOEPHEDRINE HYDROCHLORIDE [Suspect]
     Active Substance: IBUPROFEN\PSEUDOEPHEDRINE HYDROCHLORIDE
     Indication: Migraine
     Dosage: UNK
     Route: 065
  6. IBUPROFEN\PSEUDOEPHEDRINE HYDROCHLORIDE [Suspect]
     Active Substance: IBUPROFEN\PSEUDOEPHEDRINE HYDROCHLORIDE
     Indication: Back pain
  7. VALERIAN [Suspect]
     Active Substance: VALERIAN
     Indication: Migraine
     Dosage: UNK
     Route: 065
  8. VALERIAN [Suspect]
     Active Substance: VALERIAN
     Indication: Back pain
  9. METHYLPREDNISOLONE [Suspect]
     Active Substance: METHYLPREDNISOLONE
     Indication: Oedematous kidney
     Dosage: UNK
     Route: 065

REACTIONS (4)
  - Adrenal suppression [Recovered/Resolved]
  - Nephropathy toxic [Recovered/Resolved]
  - Abscess limb [Unknown]
  - Sepsis [Unknown]
